FAERS Safety Report 9328706 (Version 5)
Quarter: 2013Q4

REPORT INFORMATION
  Report Type: Spontaneous
  Country: US (occurrence: US)
  Receive Date: 20130604
  Receipt Date: 20131217
  Transmission Date: 20140711
  Serious: Yes (Other)
  Sender: FDA-Public Use
  Company Number: US-PFIZER INC-2013094975

PATIENT
  Age: 93 Year
  Sex: Male
  Weight: 75.74 kg

DRUGS (3)
  1. DETROL LA [Suspect]
     Indication: MICTURITION URGENCY
     Dosage: 4 MG, 1X/DAY
     Route: 048
     Dates: start: 20130208, end: 20130510
  2. NEURONTIN [Concomitant]
     Dosage: UNK
  3. TOVIAZ [Concomitant]
     Dosage: UNK

REACTIONS (4)
  - Cellulitis [Unknown]
  - Glycosylated haemoglobin increased [Unknown]
  - Drug ineffective [Unknown]
  - Abdominal discomfort [Unknown]
